APPROVED DRUG PRODUCT: DESMOPRESSIN ACETATE (NEEDS NO REFRIGERATION)
Active Ingredient: DESMOPRESSIN ACETATE
Strength: 0.01MG/SPRAY
Dosage Form/Route: SPRAY, METERED;NASAL
Application: A076703 | Product #001 | TE Code: AB
Applicant: APOTEX INC
Approved: Jan 27, 2005 | RLD: No | RS: Yes | Type: RX